FAERS Safety Report 5847835-6 (Version None)
Quarter: 2008Q3

REPORT INFORMATION
  Report Type: 
  Country: None (occurrence: None)
  Receive Date: 20080814
  Receipt Date: 20080814
  Transmission Date: 20090109
  Serious: No
  Sender: FDA-Public Use
  Company Number: None

PATIENT
  Age: 38 Year
  Sex: Female
  Weight: 71.6683 kg

DRUGS (2)
  1. LEVAQUIN [Suspect]
     Indication: SINUSITIS
     Dosage: 2 DAILY 10 DAYS PO
     Route: 048
     Dates: start: 20080612, end: 20080622
  2. CIPRO [Suspect]
     Indication: SINUSITIS

REACTIONS (2)
  - PAIN IN EXTREMITY [None]
  - TENDON PAIN [None]
